FAERS Safety Report 6432065-X (Version None)
Quarter: 2009Q4

REPORT INFORMATION
  Report Type: 
  Country: None (occurrence: None)
  Receive Date: 20091109
  Receipt Date: 20091028
  Transmission Date: 20100525
  Serious: Yes (Hospitalization)
  Sender: FDA-Public Use
  Company Number: JP-ROCHE-663645

PATIENT
  Sex: Female
  Weight: 9.3 kg

DRUGS (9)
  1. HORIZON [Suspect]
     Indication: CONVULSION
     Dosage: 5 MG, UID/QD
     Route: 041
     Dates: start: 20090920, end: 20090920
  2. DORMICUM (INJ) [Suspect]
     Indication: CONVULSION
     Dosage: 3 MG, UID/QD
     Route: 041
     Dates: start: 20090920, end: 20090920
  3. MUCODYNE [Suspect]
     Indication: OTITIS MEDIA
     Dosage: DRY SYRUP; DRUG REPORTED: MUCODYNE-DS
     Route: 048
     Dates: start: 20090807, end: 20090929
  4. SOLDEM [Suspect]
     Indication: DEHYDRATION
     Dosage: UID/QD; ROUTE: IV NOS; DRUG REPORTED: SOLDEM 1
     Route: 042
     Dates: start: 20090920, end: 20090920
  5. ZITHROMAX [Suspect]
     Indication: PNEUMONIA
     Dosage: ROUTE: PER ORAL, UID/QD
     Route: 048
     Dates: start: 20090919, end: 20090921
  6. ASVERIN [Suspect]
     Indication: UPPER RESPIRATORY TRACT INFLAMMATION
     Route: 048
     Dates: start: 20090918, end: 20090920
  7. TELGIN-G [Suspect]
     Indication: UPPER RESPIRATORY TRACT INFLAMMATION
     Route: 048
     Dates: start: 20090918, end: 20090920
  8. HOKUNALIN [Concomitant]
     Dosage: FORM: TAPE
  9. DIAPP [Concomitant]

REACTIONS (3)
  - ASTHMA [None]
  - GLOSSOPTOSIS [None]
  - RESPIRATORY DEPRESSION [None]
